FAERS Safety Report 17653348 (Version 2)
Quarter: 2020Q2

REPORT INFORMATION
  Report Type: Report from Study
  Country: FR (occurrence: FR)
  Receive Date: 20200409
  Receipt Date: 20200410
  Transmission Date: 20200713
  Serious: Yes (Death, Other)
  Sender: FDA-Public Use
  Company Number: GB-JAZZ-2020-FR-004859

PATIENT

DRUGS (1)
  1. DEFITELIO [Suspect]
     Active Substance: DEFIBROTIDE SODIUM
     Indication: VENOOCCLUSIVE DISEASE
     Dosage: DOSE AND FREQUENCY UNKNOWN
     Dates: start: 20191102, end: 20191128

REACTIONS (1)
  - Death [Fatal]

NARRATIVE: CASE EVENT DATE: 201911
